FAERS Safety Report 10208598 (Version 2)
Quarter: 2014Q2

REPORT INFORMATION
  Report Type: Spontaneous
  Country: US (occurrence: US)
  Receive Date: 20140530
  Receipt Date: 20140530
  Transmission Date: 20141212
  Serious: No
  Sender: FDA-Public Use
  Company Number: US-ASTRAZENECA-2014SE28108

PATIENT
  Sex: Female

DRUGS (3)
  1. PULMICORT FLEXHALER [Suspect]
     Route: 055
  2. PULMICORT FLEXHALER [Suspect]
     Route: 055
     Dates: start: 20140303
  3. PULMICORT FLEXHALER [Suspect]
     Route: 055
     Dates: start: 20140419

REACTIONS (2)
  - Condition aggravated [Unknown]
  - Intentional product misuse [Unknown]
